FAERS Safety Report 7760618-5 (Version None)
Quarter: 2011Q3

REPORT INFORMATION
  Report Type: 
  Country: None (occurrence: None)
  Receive Date: 20110919
  Receipt Date: 20110908
  Transmission Date: 20111222
  Serious: Yes (Hospitalization)
  Sender: FDA-Public Use
  Company Number: US-ASTRAZENECA-2011SE53866

PATIENT
  Age: 58 Year
  Sex: Female
  Weight: 63.5 kg

DRUGS (9)
  1. SEROQUEL XR [Suspect]
     Indication: DEPRESSION
     Route: 048
     Dates: start: 20080101
  2. SEROQUEL XR [Suspect]
     Route: 048
  3. FERROUS SULFATE TAB [Concomitant]
     Indication: IRON DEFICIENCY
     Route: 048
  4. MULTI-VITAMIN [Concomitant]
     Route: 048
  5. UNSPECIFIED ANTIDEPRESSANT [Concomitant]
  6. FERROUS SULFATE TAB [Concomitant]
     Route: 048
  7. SEROQUEL XR [Suspect]
     Route: 048
  8. SIMVASTATIN [Concomitant]
  9. OTHER MEDICATIONS [Concomitant]

REACTIONS (9)
  - BLOOD CALCIUM DECREASED [None]
  - BLOOD POTASSIUM DECREASED [None]
  - DRUG DOSE OMISSION [None]
  - PULMONARY THROMBOSIS [None]
  - IRON DEFICIENCY [None]
  - MALAISE [None]
  - LYMPHOEDEMA [None]
  - FATIGUE [None]
  - CEREBRAL THROMBOSIS [None]
